FAERS Safety Report 11396848 (Version 3)
Quarter: 2015Q3

REPORT INFORMATION
  Report Type: Spontaneous
  Country: US (occurrence: US)
  Receive Date: 20150819
  Receipt Date: 20150901
  Transmission Date: 20151125
  Serious: Yes (Other)
  Sender: FDA-Public Use
  Company Number: US-SA-2015SA122370

PATIENT
  Sex: Female

DRUGS (2)
  1. SOLOSTAR [Suspect]
     Active Substance: DEVICE
     Indication: DIABETES MELLITUS
  2. LANTUS SOLOSTAR [Suspect]
     Active Substance: INSULIN GLARGINE
     Indication: DIABETES MELLITUS
     Dosage: 20 UNITS IN THE AM + 10 UNTS AT NIGHT
     Route: 065

REACTIONS (5)
  - Arthritis [Unknown]
  - Stent placement [Unknown]
  - Injection site haemorrhage [Unknown]
  - Drug administration error [Unknown]
  - Hypoacusis [Unknown]
